FAERS Safety Report 23080536 (Version 5)
Quarter: 2024Q3

REPORT INFORMATION
  Report Type: Spontaneous
  Country: US (occurrence: US)
  Receive Date: 20231018
  Receipt Date: 20240711
  Transmission Date: 20241017
  Serious: Yes (Other)
  Sender: BRISTOL MYERS SQUIBB
  Company Number: US-BRISTOL-MYERS SQUIBB COMPANY-2023-146721

PATIENT
  Age: 73 Year
  Sex: Male

DRUGS (1)
  1. REVLIMID [Suspect]
     Active Substance: LENALIDOMIDE
     Indication: Plasma cell myeloma
     Dosage: FREQUENCY: QD
     Route: 048

REACTIONS (9)
  - Bronchitis [Unknown]
  - Pneumonia [Unknown]
  - Rash [Unknown]
  - Diarrhoea [Unknown]
  - Pain [Unknown]
  - Brain fog [Unknown]
  - Neuropathy peripheral [Unknown]
  - Swelling [Unknown]
  - Squamous cell carcinoma of skin [Unknown]
